FAERS Safety Report 24128435 (Version 2)
Quarter: 2024Q3

REPORT INFORMATION
  Report Type: Spontaneous
  Country: US (occurrence: US)
  Receive Date: 20240723
  Receipt Date: 20240819
  Transmission Date: 20241016
  Serious: Yes (Other)
  Sender: TEVA
  Company Number: US-TEVA-VS-3219742

PATIENT
  Age: 65 Year
  Sex: Male

DRUGS (8)
  1. CARBOPLATIN [Suspect]
     Active Substance: CARBOPLATIN
     Indication: Non-small cell lung cancer
     Dosage: INFUSION
     Route: 050
     Dates: start: 2021, end: 2021
  2. MOXIFLOXACIN [Concomitant]
     Active Substance: MOXIFLOXACIN
     Indication: Product used for unknown indication
     Route: 065
  3. PACLITAXEL [Suspect]
     Active Substance: PACLITAXEL
     Indication: Non-small cell lung cancer
     Dosage: INFUSION
     Route: 050
     Dates: start: 2021, end: 2021
  4. DORZOLAMIDE\TIMOLOL [Concomitant]
     Active Substance: DORZOLAMIDE\TIMOLOL
     Indication: Open angle glaucoma
     Route: 065
  5. DURVALUMAB [Suspect]
     Active Substance: DURVALUMAB
     Indication: Non-small cell lung cancer
     Dosage: INFUSION
     Route: 050
     Dates: start: 202112
  6. PREDNISONE [Suspect]
     Active Substance: PREDNISONE
     Indication: Limbal stem cell deficiency
     Route: 048
  7. PREDNISONE [Suspect]
     Active Substance: PREDNISONE
     Indication: Limbal stem cell deficiency
     Route: 048
  8. BRIMONIDINE [Concomitant]
     Active Substance: BRIMONIDINE TARTRATE
     Indication: Open angle glaucoma
     Route: 065
     Dates: end: 202203

REACTIONS (4)
  - Infusion related reaction [Unknown]
  - Limbal stem cell deficiency [Recovering/Resolving]
  - Drug ineffective [Unknown]
  - Corneal perforation [Recovered/Resolved]

NARRATIVE: CASE EVENT DATE: 20210101
